FAERS Safety Report 9380616 (Version 1)
Quarter: 2013Q2

REPORT INFORMATION
  Report Type: Spontaneous
  Country: US (occurrence: None)
  Receive Date: 20130628
  Receipt Date: 20130628
  Transmission Date: 20140414
  Serious: Yes (Hospitalization)
  Sender: FDA-Public Use
  Company Number: UCM201306-000033

PATIENT
  Age: 26 Year
  Sex: Male

DRUGS (6)
  1. CLONIDINE HCL [Suspect]
  2. PROPOFOL [Suspect]
  3. NITROUS OXIDE [Suspect]
  4. NALOXONE [Suspect]
  5. EPINEPHRINE [Suspect]
  6. VASOPRESSIN [Suspect]

REACTIONS (2)
  - Pulseless electrical activity [None]
  - Necrotising fasciitis [None]
